FAERS Safety Report 7266826-4 (Version None)
Quarter: 2011Q1

REPORT INFORMATION
  Report Type: 
  Country: None (occurrence: None)
  Receive Date: 20110201
  Receipt Date: 20110121
  Transmission Date: 20110831
  Serious: Yes (Life-Threatening)
  Sender: FDA-Public Use
  Company Number: DE-JNJFOC-20110105912

PATIENT
  Sex: Female
  Weight: 74 kg

DRUGS (6)
  1. REMICADE [Suspect]
     Dosage: 3RD INFUSION
     Route: 042
  2. REMICADE [Suspect]
     Indication: CROHN'S DISEASE
     Route: 042
  3. DECORTIN [Concomitant]
     Indication: CROHN'S DISEASE
     Dosage: ALSO REPORTED AS 10 MG DAILY FROM 19-DEC-2010 TO 07-JAN-2011
  4. REMICADE [Suspect]
     Route: 042
  5. URBASON [Concomitant]
     Indication: PREMEDICATION
     Route: 042
  6. HUMIRA [Suspect]
     Indication: CROHN'S DISEASE

REACTIONS (8)
  - CHEST PAIN [None]
  - TACHYCARDIA [None]
  - BRONCHOSPASM [None]
  - PALPITATIONS [None]
  - ANAPHYLACTIC REACTION [None]
  - CONFUSIONAL STATE [None]
  - DYSPNOEA [None]
  - INFUSION RELATED REACTION [None]
